FAERS Safety Report 21057289 (Version 2)
Quarter: 2022Q3

REPORT INFORMATION
  Report Type: Spontaneous
  Country: US (occurrence: US)
  Receive Date: 20220708
  Receipt Date: 20220823
  Transmission Date: 20221027
  Serious: No
  Sender: FDA-Public Use
  Company Number: US-MICRO LABS LIMITED-ML2022-03096

PATIENT
  Age: 81 Year
  Sex: Female

DRUGS (2)
  1. DORZOLAMIDE HYDROCHLORIDE [Suspect]
     Active Substance: DORZOLAMIDE HYDROCHLORIDE
     Indication: Glaucoma
     Dosage: 2% (10 ML) (ONE DROP IN THE RIGHT EYE, THRICE A DAY)
     Route: 047
     Dates: start: 20220610
  2. TIMOLOL MALEATE. [Concomitant]
     Dosage: ONE DROP, TWICE A DAY IN THE RIGHT EYE

REACTIONS (4)
  - Product container issue [Unknown]
  - No adverse event [Unknown]
  - Product dose omission issue [Unknown]
  - Inadequate aseptic technique in use of product [Unknown]
